FAERS Safety Report 7991128-8 (Version None)
Quarter: 2011Q4

REPORT INFORMATION
  Report Type: 
  Country: None (occurrence: None)
  Receive Date: 20111219
  Receipt Date: 20111208
  Transmission Date: 20120403
  Serious: Yes (Disabling)
  Sender: FDA-Public Use
  Company Number: JP-JNJFOC-20111105084

PATIENT
  Sex: Female
  Weight: 50 kg

DRUGS (6)
  1. INVEGA [Suspect]
     Indication: SCHIZOPHRENIA, PARANOID TYPE
     Route: 048
     Dates: start: 20110922
  2. ROZEREM [Concomitant]
     Indication: INSOMNIA
     Route: 048
  3. AKINETON [Concomitant]
     Indication: PARKINSONISM
     Route: 048
  4. NITRAZEPAM [Concomitant]
     Indication: INSOMNIA
     Route: 048
  5. RABEPRAZOLE SODIUM [Concomitant]
     Indication: DUODENAL ULCER
     Route: 048
  6. INVEGA [Suspect]
     Route: 048
     Dates: start: 20110725, end: 20110921

REACTIONS (3)
  - FEMUR FRACTURE [None]
  - EXTRAPYRAMIDAL DISORDER [None]
  - FALL [None]
